FAERS Safety Report 22588764 (Version 3)
Quarter: 2023Q2

REPORT INFORMATION
  Report Type: Spontaneous
  Country: FR (occurrence: FR)
  Receive Date: 20230612
  Receipt Date: 20230622
  Transmission Date: 20230722
  Serious: Yes (Hospitalization, Disabling, Other)
  Sender: FDA-Public Use
  Company Number: FR-STADA-278100

PATIENT
  Age: 68 Year
  Sex: Female

DRUGS (1)
  1. LEFLUNOMIDE [Suspect]
     Active Substance: LEFLUNOMIDE
     Indication: Rheumatoid arthritis
     Dosage: 20 MILLIGRAM, ONCE A DAY
     Route: 065

REACTIONS (15)
  - Memory impairment [Not Recovered/Not Resolved]
  - Disturbance in attention [Not Recovered/Not Resolved]
  - Rheumatoid meningitis [Recovered/Resolved with Sequelae]
  - Hemianopia homonymous [Recovered/Resolved with Sequelae]
  - Altered state of consciousness [Recovered/Resolved]
  - Seizure [Recovered/Resolved]
  - Hyperleukocytosis [Recovering/Resolving]
  - Hemiplegia [Recovered/Resolved with Sequelae]
  - Inflammation [Recovering/Resolving]
  - Cognitive disorder [Not Recovered/Not Resolved]
  - Encephalitis [Recovering/Resolving]
  - Anti-cyclic citrullinated peptide antibody positive [Recovering/Resolving]
  - Movement disorder [Not Recovered/Not Resolved]
  - Apraxia [Not Recovered/Not Resolved]
  - Asthenia [Not Recovered/Not Resolved]
